FAERS Safety Report 9387993 (Version 2)
Quarter: 2013Q4

REPORT INFORMATION
  Report Type: Spontaneous
  Country: FR (occurrence: None)
  Receive Date: 20130703
  Receipt Date: 20131101
  Transmission Date: 20140711
  Serious: Yes (Other)
  Sender: FDA-Public Use
  Company Number: 2013MPI00385

PATIENT
  Age: 83 Year
  Sex: Male

DRUGS (3)
  1. ADCETRIS [Suspect]
     Indication: MYCOSIS FUNGOIDES
     Dosage: 130 MG, Q21D, INTRAVENOUS
     Route: 042
     Dates: start: 20130319
  2. CORTANCYL [Suspect]
     Indication: PRODUCT USED FOR UNKNOWN INDICATION
     Route: 048
     Dates: start: 20130319, end: 20130430
  3. DIPROSONE [Suspect]
     Indication: PRODUCT USED FOR UNKNOWN INDICATION
     Dosage: CUTANEOUS
     Dates: end: 20130430

REACTIONS (8)
  - Hyperglycaemia [None]
  - General physical health deterioration [None]
  - Decreased appetite [None]
  - Nausea [None]
  - Glycosuria [None]
  - Renal failure acute [None]
  - Dehydration [None]
  - Diabetes mellitus [None]
